FAERS Safety Report 16651483 (Version 1)
Quarter: 2019Q3

REPORT INFORMATION
  Report Type: Spontaneous
  Country: US (occurrence: US)
  Receive Date: 20190730
  Receipt Date: 20190730
  Transmission Date: 20191004
  Serious: Yes (Hospitalization)
  Sender: FDA-Public Use
  Company Number: None

PATIENT
  Age: 62 Year
  Sex: Female

DRUGS (13)
  1. CELECOXIB. [Concomitant]
     Active Substance: CELECOXIB
     Dates: start: 20190216
  2. FOLIC ACID. [Concomitant]
     Active Substance: FOLIC ACID
     Dates: start: 20190526
  3. MELOXICAM. [Concomitant]
     Active Substance: MELOXICAM
     Dates: start: 20190218
  4. TIZANIDINE. [Concomitant]
     Active Substance: TIZANIDINE
     Dates: start: 20190131
  5. NEURONTIN [Concomitant]
     Active Substance: GABAPENTIN
     Dates: start: 20170921
  6. OXYBUTYNIN. [Concomitant]
     Active Substance: OXYBUTYNIN CHLORIDE
     Dates: start: 20181231
  7. GABAPENTIN. [Concomitant]
     Active Substance: GABAPENTIN
     Dates: start: 20190625
  8. TRAZODONE [Concomitant]
     Active Substance: TRAZODONE HYDROCHLORIDE
     Dates: start: 20170921
  9. VITAMIN D [Concomitant]
     Active Substance: VITAMIN D NOS
     Dates: start: 20190521
  10. ORENCIA [Suspect]
     Active Substance: ABATACEPT
     Indication: RHEUMATOID ARTHRITIS
     Dosage: ?          OTHER FREQUENCY:ONCE A WEEK;?
     Route: 058
     Dates: start: 20190626
  11. DULOXETINE. [Concomitant]
     Active Substance: DULOXETINE
     Dates: start: 20190521
  12. OMEPRAZOLE. [Concomitant]
     Active Substance: OMEPRAZOLE
     Dates: start: 20190616
  13. VITAMIN B12 [Concomitant]
     Active Substance: CYANOCOBALAMIN
     Dates: start: 20170921

REACTIONS (2)
  - Intervertebral disc operation [None]
  - Therapy cessation [None]

NARRATIVE: CASE EVENT DATE: 20190722
